FAERS Safety Report 7737795-5 (Version None)
Quarter: 2011Q3

REPORT INFORMATION
  Report Type: 
  Country: None (occurrence: None)
  Receive Date: 20110908
  Receipt Date: 20110829
  Transmission Date: 20111222
  Serious: Yes (Other)
  Sender: FDA-Public Use
  Company Number: PHHY2011BR51694

PATIENT
  Sex: Female

DRUGS (2)
  1. RITALIN LA [Suspect]
     Indication: ATTENTION DEFICIT/HYPERACTIVITY DISORDER
     Dosage: 30 MG, UNK
  2. RITALIN [Suspect]
     Dosage: 10 MG, TID

REACTIONS (2)
  - MALAISE [None]
  - DEPRESSION [None]
